FAERS Safety Report 24774444 (Version 2)
Quarter: 2025Q1

REPORT INFORMATION
  Report Type: Spontaneous
  Country: US (occurrence: US)
  Receive Date: 20241225
  Receipt Date: 20250221
  Transmission Date: 20250409
  Serious: No
  Sender: FDC LIMITED
  Company Number: US-FDC-2024USSPO00911

PATIENT
  Sex: Female

DRUGS (1)
  1. TIMOLOL MALEATE [Suspect]
     Active Substance: TIMOLOL MALEATE
     Indication: Glaucoma
     Route: 047

REACTIONS (2)
  - Eye swelling [Unknown]
  - Eye irritation [Unknown]
